FAERS Safety Report 14036016 (Version 1)
Quarter: 2017Q4

REPORT INFORMATION
  Report Type: Spontaneous
  Country: US (occurrence: US)
  Receive Date: 20171003
  Receipt Date: 20171003
  Transmission Date: 20180321
  Serious: No
  Sender: FDA-Public Use
  Company Number: US-ROCHE-1967035

PATIENT
  Sex: Male

DRUGS (2)
  1. HYALURONIDASE [Suspect]
     Active Substance: HYALURONIDASE
     Indication: LYMPHOMA
     Route: 030
     Dates: start: 20170719
  2. RITUXAN HYCELA [Suspect]
     Active Substance: HYALURONIDASE (HUMAN RECOMBINANT)\RITUXIMAB
     Indication: LYMPHOMA
     Route: 058
     Dates: start: 20170719

REACTIONS (2)
  - Chills [Recovered/Resolved]
  - Intercepted drug administration error [Unknown]

NARRATIVE: CASE EVENT DATE: 20170719
